FAERS Safety Report 23243230 (Version 2)
Quarter: 2023Q4

REPORT INFORMATION
  Report Type: Report from Study
  Country: US (occurrence: US)
  Receive Date: 20231130
  Receipt Date: 20231207
  Transmission Date: 20240110
  Serious: No
  Sender: FDA-Public Use
  Company Number: US-ALXN-A202302781

PATIENT
  Sex: Female

DRUGS (2)
  1. ULTOMIRIS [Suspect]
     Active Substance: RAVULIZUMAB-CWVZ
     Indication: Myasthenia gravis
     Dosage: UNK
     Route: 065
     Dates: start: 20230301
  2. MENINGOCOCCAL POLYSACCHARIDE VACCINE A NOS [Suspect]
     Active Substance: MENINGOCOCCAL POLYSACCHARIDE VACCINE A\NEISSERIA MENINGITIDIS GROUP A CAPSULAR POLYSACCHARIDE ANTIGE
     Indication: Immunisation
     Dosage: UNK
     Route: 065

REACTIONS (28)
  - Ageusia [Recovered/Resolved]
  - Dysphagia [Recovering/Resolving]
  - Balance disorder [Recovered/Resolved]
  - Sputum retention [Recovered/Resolved]
  - Neck pain [Recovered/Resolved]
  - Musculoskeletal stiffness [Recovering/Resolving]
  - Gait inability [Unknown]
  - Tremor [Unknown]
  - Feeling of body temperature change [Not Recovered/Not Resolved]
  - Influenza [Unknown]
  - Cough [Unknown]
  - Crying [Unknown]
  - Memory impairment [Unknown]
  - Confusional state [Unknown]
  - Frustration tolerance decreased [Unknown]
  - Herpes zoster [Unknown]
  - Vertigo [Recovering/Resolving]
  - Pain [Recovering/Resolving]
  - Pain in extremity [Recovering/Resolving]
  - Condition aggravated [Recovering/Resolving]
  - Stress [Unknown]
  - Back pain [Recovering/Resolving]
  - Dizziness [Recovering/Resolving]
  - Arthralgia [Unknown]
  - Headache [Recovered/Resolved]
  - Gait disturbance [Unknown]
  - Fatigue [Unknown]
  - Chills [Unknown]

NARRATIVE: CASE EVENT DATE: 20230301
